FAERS Safety Report 20225381 (Version 1)
Quarter: 2021Q4

REPORT INFORMATION
  Report Type: Spontaneous
  Country: CA (occurrence: CA)
  Receive Date: 20211224
  Receipt Date: 20211224
  Transmission Date: 20220303
  Serious: Yes (Hospitalization, Other)
  Sender: FDA-Public Use
  Company Number: CA-BAXTER-2021BAX041490

PATIENT
  Age: 11 Year
  Sex: Male

DRUGS (6)
  1. CYCLOPHOSPHAMIDE [Suspect]
     Active Substance: CYCLOPHOSPHAMIDE
     Indication: Urinary bladder sarcoma
     Route: 065
  2. CYCLOPHOSPHAMIDE [Suspect]
     Active Substance: CYCLOPHOSPHAMIDE
     Indication: Rhabdomyosarcoma
     Dosage: DOSAGE FORM: NOT SPECIFIED
     Route: 065
  3. COSMEGEN [Suspect]
     Active Substance: DACTINOMYCIN
     Indication: Urinary bladder sarcoma
     Route: 065
  4. COSMEGEN [Suspect]
     Active Substance: DACTINOMYCIN
     Indication: Rhabdomyosarcoma
     Dosage: DOSAGE FORM: POWDER FOR SOLUTION INTRAVENOUS
     Route: 065
  5. VINCRISTINE SULFATE [Suspect]
     Active Substance: VINCRISTINE SULFATE
     Indication: Product used for unknown indication
     Route: 065
  6. METHIMAZOLE [Concomitant]
     Active Substance: METHIMAZOLE
     Indication: Product used for unknown indication
     Route: 065

REACTIONS (2)
  - Nocturia [Recovered/Resolved]
  - Urinary bladder rupture [Recovered/Resolved]
